FAERS Safety Report 9859983 (Version 1)
Quarter: 2014Q1

REPORT INFORMATION
  Report Type: Other
  Country: US (occurrence: US)
  Receive Date: 20140131
  Receipt Date: 20140131
  Transmission Date: 20141002
  Serious: Yes (Hospitalization)
  Sender: FDA-Public Use
  Company Number: US-RB-062995-14

PATIENT
  Sex: 0

DRUGS (3)
  1. BUPRENORPHINE/NALOXONE UNSPECIFIED [Suspect]
     Dosage: TOOK 4 MG ONE EVENING
     Route: 065
  2. BUPRENORPHINE/NALOXONE UNSPECIFIED [Suspect]
     Dosage: TOOK 8 MG IN AM
     Route: 065
  3. BUPRENORPHINE/NALOXONE UNSPECIFIED [Suspect]
     Indication: DRUG DEPENDENCE
     Dosage: TAKING 8 MG TWICE A DAY OR 16 MG ONCE DAILY
     Route: 065

REACTIONS (1)
  - Hospitalisation [Unknown]
